FAERS Safety Report 8775587 (Version 1)
Quarter: 2012Q4

REPORT INFORMATION
  Report Type: 
  Country: US (occurrence: US)
  Receive Date: 20120907
  Receipt Date: 20120907
  Transmission Date: 20130627
  Serious: Yes (Other)
  Sender: FDA-Public Use
  Company Number: CHPA2012US019158

PATIENT
  Sex: Female

DRUGS (1)
  1. EXCEDRIN SINUS HEADACHE [Suspect]
     Indication: SINUS HEADACHE
     Dosage: FOLLOWED DIRECTION
     Route: 048

REACTIONS (2)
  - Hypertension [Not Recovered/Not Resolved]
  - Drug ineffective [Unknown]
